FAERS Safety Report 18192277 (Version 2)
Quarter: 2020Q3

REPORT INFORMATION
  Report Type: Spontaneous
  Country: US (occurrence: US)
  Receive Date: 20200825
  Receipt Date: 20200827
  Transmission Date: 20201103
  Serious: No
  Sender: FDA-Public Use
  Company Number: US-PFIZER INC-2020327911

PATIENT
  Sex: Male

DRUGS (1)
  1. TOLTERODINE TARTRATE. [Suspect]
     Active Substance: TOLTERODINE TARTRATE
     Indication: POLLAKIURIA
     Dosage: 4 MG

REACTIONS (1)
  - Therapeutic product effect decreased [Unknown]
